FAERS Safety Report 24918802 (Version 1)
Quarter: 2025Q1

REPORT INFORMATION
  Report Type: Spontaneous
  Country: US (occurrence: US)
  Receive Date: 20250204
  Receipt Date: 20250204
  Transmission Date: 20250408
  Serious: Yes (Other)
  Sender: Harrow Health
  Company Number: US-IMP-2025000080

PATIENT
  Age: 17 Year
  Sex: Male

DRUGS (1)
  1. PREDNISOLONE [Suspect]
     Active Substance: PREDNISOLONE
     Indication: Histiocytic necrotising lymphadenitis
     Route: 065

REACTIONS (3)
  - Keratoconus [Unknown]
  - Cataract cortical [Unknown]
  - Off label use [Unknown]
